FAERS Safety Report 6614500-7 (Version None)
Quarter: 2010Q1

REPORT INFORMATION
  Report Type: 
  Country: None (occurrence: None)
  Receive Date: 20100304
  Receipt Date: 20100301
  Transmission Date: 20100710
  Serious: Yes (Life-Threatening, Hospitalization, Other)
  Sender: FDA-Public Use
  Company Number: US-MERCK-1002USA02739

PATIENT
  Age: 40 Year
  Sex: Male

DRUGS (4)
  1. ISENTRESS [Suspect]
     Indication: HIV INFECTION
     Route: 048
     Dates: start: 20100101
  2. STADOL [Concomitant]
     Route: 065
  3. IMITREX [Concomitant]
     Route: 065
  4. TRUVADA [Concomitant]
     Route: 065

REACTIONS (3)
  - ARTERIOSPASM CORONARY [None]
  - MIGRAINE [None]
  - MYOCARDIAL INFARCTION [None]
